FAERS Safety Report 15918763 (Version 2)
Quarter: 2019Q1

REPORT INFORMATION
  Report Type: Spontaneous
  Country: US (occurrence: US)
  Receive Date: 20190205
  Receipt Date: 20190208
  Transmission Date: 20190417
  Serious: Yes (Hospitalization, Other)
  Sender: FDA-Public Use
  Company Number: US-PFIZER INC-2018231406

PATIENT
  Age: 85 Year
  Sex: Female
  Weight: 64 kg

DRUGS (7)
  1. LYRICA [Suspect]
     Active Substance: PREGABALIN
     Indication: FIBROMYALGIA
  2. VOLTAREN [DICLOFENAC] [Concomitant]
     Active Substance: DICLOFENAC SODIUM
     Dosage: UNK
     Route: 061
  3. MOBIC [Concomitant]
     Active Substance: MELOXICAM
     Dosage: 15 MG, UNK
  4. LYRICA [Suspect]
     Active Substance: PREGABALIN
     Indication: NEUROPATHY PERIPHERAL
     Dosage: 200 MG, 2X/DAY (TAKE 1 CAPSULE BY MOUTH TWICE DAILY, QTY: 180)
     Route: 048
  5. TRAMADOL. [Concomitant]
     Active Substance: TRAMADOL
     Indication: PAIN
     Dosage: 50 MG, UNK
  6. ESTRADIOL [ESTRADIOL VALERATE] [Concomitant]
     Dosage: 0.5 MG, UNK
  7. MOBIC [Concomitant]
     Active Substance: MELOXICAM
     Dosage: 50 MG, UNK

REACTIONS (7)
  - Hypoacusis [Unknown]
  - Withdrawal syndrome [Unknown]
  - Scoliosis [Unknown]
  - Body height decreased [Unknown]
  - Vomiting [Unknown]
  - Haematemesis [Unknown]
  - Spinal osteoarthritis [Unknown]
